FAERS Safety Report 5082751-1 (Version None)
Quarter: 2006Q3

REPORT INFORMATION
  Report Type: 
  Country: None (occurrence: None)
  Receive Date: 20060816
  Receipt Date: 20060816
  Transmission Date: 20061208
  Serious: Yes (Other)
  Sender: FDA-Public Use
  Company Number: None

PATIENT
  Sex: Female
  Weight: 67 kg

DRUGS (7)
  1. XOLAIR [Suspect]
     Indication: ASTHMA
     Dosage: 300 MG Q  4 WEEKS  SQ
     Dates: start: 20040801, end: 20060101
  2. XOLAIR [Suspect]
     Indication: HYPERSENSITIVITY
     Dosage: 300 MG Q  4 WEEKS  SQ
     Dates: start: 20040801, end: 20060101
  3. ADVAIR DISKUS 100/50 [Concomitant]
  4. SPIRIVA [Concomitant]
  5. QVAR STEROID [Concomitant]
  6. SINGULAIR [Concomitant]
  7. ALBUTEROL [Concomitant]

REACTIONS (2)
  - BREAST CYST [None]
  - CERVICAL CYST [None]
